FAERS Safety Report 9169624 (Version 2)
Quarter: 2013Q3

REPORT INFORMATION
  Report Type: Spontaneous
  Country: US (occurrence: US)
  Receive Date: 20130318
  Receipt Date: 20130704
  Transmission Date: 20140515
  Serious: No
  Sender: FDA-Public Use
  Company Number: US-009507513-1303USA006057

PATIENT
  Age: 18 Year
  Sex: Female
  Weight: 126.53 kg

DRUGS (2)
  1. IMPLANON [Suspect]
     Indication: CONTRACEPTION
     Dosage: 1 ROD, UNK
     Route: 059
     Dates: start: 20130130, end: 20130425
  2. IMPLANON [Suspect]
     Dosage: UNK
     Route: 059

REACTIONS (4)
  - Weight increased [Unknown]
  - Implant site pain [Recovered/Resolved]
  - Device kink [Recovered/Resolved]
  - Device dislocation [Recovered/Resolved]
